FAERS Safety Report 21664776 (Version 1)
Quarter: 2022Q4

REPORT INFORMATION
  Report Type: Report from Study
  Country: ES (occurrence: ES)
  Receive Date: 20221130
  Receipt Date: 20221130
  Transmission Date: 20230113
  Serious: Yes (Hospitalization, Other)
  Sender: FDA-Public Use
  Company Number: None

PATIENT
  Age: 83 Year
  Sex: Male

DRUGS (10)
  1. EMTRICITABINE\TENOFOVIR DISOPROXIL FUMARATE [Suspect]
     Active Substance: EMTRICITABINE\TENOFOVIR DISOPROXIL FUMARATE
     Indication: Product used for unknown indication
     Dosage: UNK
     Route: 048
     Dates: start: 20200520, end: 20220924
  2. JENTADUETO [Concomitant]
     Active Substance: LINAGLIPTIN\METFORMIN HYDROCHLORIDE
     Dosage: 1/12  HORAS
     Route: 048
     Dates: start: 20150826
  3. DUTASTERIDA/TAMSULOSINA CINFAMED [Concomitant]
     Dosage: 1/24 HRS
     Route: 048
     Dates: start: 20220721
  4. FUROSEMIDE [Concomitant]
     Active Substance: FUROSEMIDE
     Dosage: 1/24 HRS
     Route: 042
     Dates: start: 20220917
  5. DECAPEPTYL SEMESTRAL [Concomitant]
     Dosage: 1/180 D?AS
     Route: 030
     Dates: start: 20220506
  6. FLUOXETINE HYDROCHLORIDE [Concomitant]
     Active Substance: FLUOXETINE HYDROCHLORIDE
     Dosage: 1/24 HRS
     Route: 048
     Dates: start: 20220827, end: 20220924
  7. MIRTAZAPINA QUALIGEN [Concomitant]
     Dosage: 1/24 HRS
     Route: 048
     Dates: start: 20210908
  8. SILODOSINA CINFA [Concomitant]
     Dosage: 1/24 HRS
     Route: 048
     Dates: start: 20211216
  9. ACIDO ACETILSALICILICO ARISTO [Concomitant]
     Dosage: 1/24 HRS
     Route: 048
     Dates: start: 20220103, end: 20220924
  10. OLMESARTAN/AMLODIPINO/HIDROCLOROTIAZIDA CINFAMED [Concomitant]
     Dosage: 1/24 HORAS
     Route: 048
     Dates: start: 20150826, end: 20220924

REACTIONS (3)
  - Mitochondrial toxicity [Recovered/Resolved]
  - Hyperlactacidaemia [Recovered/Resolved]
  - Myopathy [Recovering/Resolving]

NARRATIVE: CASE EVENT DATE: 20220922
